FAERS Safety Report 18343687 (Version 1)
Quarter: 2020Q4

REPORT INFORMATION
  Report Type: Spontaneous
  Country: US (occurrence: US)
  Receive Date: 20201005
  Receipt Date: 20201005
  Transmission Date: 20210114
  Serious: Yes (Death)
  Sender: FDA-Public Use
  Company Number: US-AMNEAL PHARMACEUTICALS-2020-AMRX-03019

PATIENT
  Sex: Male
  Weight: 49.07 kg

DRUGS (1)
  1. VIGABATRIN. [Suspect]
     Active Substance: VIGABATRIN
     Indication: EPILEPSY
     Dosage: 2000 MILLIGRAM, 2 /DAY
     Route: 048
     Dates: end: 20200918

REACTIONS (1)
  - Multiple organ dysfunction syndrome [Fatal]
